FAERS Safety Report 20089703 (Version 3)
Quarter: 2022Q2

REPORT INFORMATION
  Report Type: Report from Study
  Country: JP (occurrence: JP)
  Receive Date: 20211119
  Receipt Date: 20220610
  Transmission Date: 20220721
  Serious: Yes (Other)
  Sender: FDA-Public Use
  Company Number: JP-Clinigen Group PLC/ Clinigen Healthcare Ltd-JP-CLGN-21-00184

PATIENT
  Age: 80 Year
  Sex: Male
  Weight: 55 kg

DRUGS (13)
  1. DEXRAZOXANE [Suspect]
     Active Substance: DEXRAZOXANE
     Indication: Infusion site extravasation
     Route: 041
     Dates: start: 20210325, end: 20210326
  2. DEXRAZOXANE [Suspect]
     Active Substance: DEXRAZOXANE
     Route: 041
     Dates: start: 20210327, end: 20210327
  3. ONCOVIN [Suspect]
     Active Substance: VINCRISTINE SULFATE
     Indication: Diffuse large B-cell lymphoma
     Route: 041
     Dates: start: 20210324, end: 20210325
  4. CYCLOPHOSPHAMIDE [Suspect]
     Active Substance: CYCLOPHOSPHAMIDE
     Indication: Diffuse large B-cell lymphoma
  5. DOXORUBICIN HYDROCHLORIDE [Suspect]
     Active Substance: DOXORUBICIN HYDROCHLORIDE
     Indication: Diffuse large B-cell lymphoma
     Route: 041
     Dates: start: 20210324, end: 20210325
  6. ETOPOSIDE [Suspect]
     Active Substance: ETOPOSIDE
     Indication: Diffuse large B-cell lymphoma
     Route: 041
     Dates: start: 20210324, end: 20210325
  7. SODIUM CHLORIDE [Concomitant]
     Active Substance: SODIUM CHLORIDE
     Indication: Medication dilution
     Route: 041
     Dates: start: 20210325, end: 20210327
  8. SULFAMETHOXAZOLE\TRIMETHOPRIM [Concomitant]
     Active Substance: SULFAMETHOXAZOLE\TRIMETHOPRIM
     Indication: Prophylaxis
     Route: 048
  9. TAMSULOSIN HYDROCHLORIDE [Concomitant]
     Active Substance: TAMSULOSIN HYDROCHLORIDE
     Indication: Hypertonic bladder
     Route: 048
  10. LUNESTA [Concomitant]
     Active Substance: ESZOPICLONE
     Indication: Insomnia
     Route: 048
  11. PREDNISOLONE [Concomitant]
     Active Substance: PREDNISOLONE
     Indication: Diffuse large B-cell lymphoma
     Route: 048
     Dates: start: 20210324, end: 20210328
  12. APREPITANT [Concomitant]
     Active Substance: APREPITANT
     Indication: Vomiting
     Route: 048
     Dates: start: 20210325, end: 20210328
  13. VONOPRAZAN FUMARATE [Concomitant]
     Active Substance: VONOPRAZAN FUMARATE
     Indication: Prophylaxis against gastrointestinal ulcer
     Route: 048

REACTIONS (3)
  - Deep vein thrombosis [Recovering/Resolving]
  - Myelosuppression [Recovered/Resolved]
  - Antithrombin III decreased [Recovering/Resolving]

NARRATIVE: CASE EVENT DATE: 20210331
